FAERS Safety Report 4833838-7 (Version None)
Quarter: 2005Q4

REPORT INFORMATION
  Report Type: 
  Country: None (occurrence: None)
  Receive Date: 20051118
  Receipt Date: 20051118
  Transmission Date: 20060501
  Serious: Yes (Hospitalization)
  Sender: FDA-Public Use
  Company Number: None

PATIENT
  Age: 53 Year
  Sex: Female
  Weight: 34.0198 kg

DRUGS (2)
  1. ALEMTUZUMAB   30MG    BERLEX [Suspect]
     Indication: IMMUNOSUPPRESSION
     Dosage: ALEMTUZUMAB  10 DOSES   IV DRIP
     Route: 041
     Dates: start: 20030904, end: 20040710
  2. ALEMTUZUMAB   100MG,  2G/D     ROCHE [Suspect]
     Indication: IMMUNOSUPPRESSION
     Dosage: ALEMTUZUMAB 6 DOSES  IV DRIP
     Route: 041
     Dates: start: 20040323, end: 20050302

REACTIONS (2)
  - ANAEMIA HAEMOLYTIC AUTOIMMUNE [None]
  - APLASIA PURE RED CELL [None]
